FAERS Safety Report 19369806 (Version 3)
Quarter: 2021Q2

REPORT INFORMATION
  Report Type: Report from Study
  Country: US (occurrence: US)
  Receive Date: 20210603
  Receipt Date: 20210616
  Transmission Date: 20210717
  Serious: No
  Sender: FDA-Public Use
  Company Number: US-BIOVITRUM-2021US4487

PATIENT
  Sex: Female

DRUGS (7)
  1. MULTIVITAMINS [Concomitant]
     Active Substance: VITAMINS
  2. PREDNISONE. [Concomitant]
     Active Substance: PREDNISONE
  3. KINERET [Suspect]
     Active Substance: ANAKINRA
     Route: 058
     Dates: start: 20210607
  4. FOLIC ACID. [Concomitant]
     Active Substance: FOLIC ACID
  5. KINERET [Suspect]
     Active Substance: ANAKINRA
     Indication: PRODUCT USED FOR UNKNOWN INDICATION
     Route: 058
     Dates: start: 20210511
  6. CALCIUM [Concomitant]
     Active Substance: CALCIUM
  7. OMEGA [Concomitant]

REACTIONS (11)
  - Myalgia [Unknown]
  - Somnolence [Recovering/Resolving]
  - Adverse reaction [Unknown]
  - Injection site reaction [Unknown]
  - Injection site pain [Unknown]
  - Injection site rash [Unknown]
  - Cough [Unknown]
  - Injection site scar [Unknown]
  - Asthenia [Recovering/Resolving]
  - Feeling abnormal [Unknown]
  - Injection site erythema [Unknown]
